FAERS Safety Report 4806348-0 (Version None)
Quarter: 2005Q4

REPORT INFORMATION
  Report Type: 
  Country: None (occurrence: None)
  Receive Date: 20051021
  Receipt Date: 20051004
  Transmission Date: 20060501
  Serious: Yes (Life-Threatening, Hospitalization)
  Sender: FDA-Public Use
  Company Number: JP-ROCHE-420062

PATIENT
  Age: 56 Year
  Sex: Female

DRUGS (20)
  1. XELODA [Suspect]
     Indication: BREAST CANCER METASTATIC
     Dosage: 3 WEEKS ADMINISTRATION FOLLOWED BY ONE WEEKS REST
     Route: 048
     Dates: start: 20050609, end: 20050726
  2. WARFARIN POTASSIUM [Suspect]
     Indication: ANTICOAGULANT THERAPY
     Route: 048
     Dates: start: 19800615, end: 20050608
  3. WARFARIN POTASSIUM [Suspect]
     Route: 048
     Dates: start: 20050608, end: 20050724
  4. WARFARIN POTASSIUM [Suspect]
     Route: 048
     Dates: start: 20050724, end: 20050725
  5. WARFARIN POTASSIUM [Suspect]
     Route: 048
     Dates: start: 20050817, end: 20050822
  6. WARFARIN POTASSIUM [Suspect]
     Route: 048
     Dates: start: 20050822
  7. HYSRON-H [Suspect]
     Indication: BREAST CANCER METASTATIC
     Route: 048
     Dates: start: 20050608, end: 20050726
  8. GASTER D [Concomitant]
     Route: 048
     Dates: start: 20050608
  9. ACTONEL [Concomitant]
     Route: 048
     Dates: start: 20050608, end: 20050726
  10. BIOFERMIN R [Concomitant]
     Dosage: FORMULATION REPORTED AS ORAL FORMULATION (NOT OTHERWISE SPECIFIED)
     Route: 048
     Dates: start: 20050608
  11. VOLTAREN [Concomitant]
     Dosage: FORMULATION REPORTED AS ORAL FORMULATION (NOT OTHERWISE SPECIFIED)
     Route: 048
     Dates: start: 20050608
  12. ARTIST [Concomitant]
     Route: 048
     Dates: start: 20050608
  13. VERAPAMIL [Concomitant]
     Route: 048
  14. HALFDIGOXIN KY [Concomitant]
     Route: 048
  15. AMARYL [Concomitant]
     Route: 048
     Dates: start: 20050608
  16. INNOLET 30R [Concomitant]
     Dosage: DRUG REPORTED AS INNOLET R 'NOTE' REPORTED AS ^(6-10-6UT)2
     Route: 058
     Dates: start: 20050608, end: 20050726
  17. MERISLON [Concomitant]
     Route: 048
     Dates: start: 20050608, end: 20050726
  18. AREDIA [Concomitant]
     Route: 041
     Dates: start: 20050608
  19. MYSLEE [Concomitant]
     Route: 048
     Dates: start: 20050608
  20. PRIMPERAN INJ [Concomitant]
     Route: 048
     Dates: start: 20050608, end: 20050703

REACTIONS (2)
  - CEREBRAL HAEMORRHAGE [None]
  - PROTHROMBIN TIME PROLONGED [None]
